FAERS Safety Report 6125662-2 (Version None)
Quarter: 2009Q1

REPORT INFORMATION
  Report Type: 
  Country: None (occurrence: None)
  Receive Date: 20090317
  Receipt Date: 20090305
  Transmission Date: 20090719
  Serious: Yes (Hospitalization)
  Sender: FDA-Public Use
  Company Number: GXKR2009GB02862

PATIENT
  Age: 43 Year
  Sex: Female
  Weight: 163.5 kg

DRUGS (12)
  1. LISINOPRIL [Suspect]
     Dosage: 50 MG, ORAL
     Route: 048
  2. ACOMPLIA [Suspect]
     Indication: OBESITY
     Dosage: 20 MG, ORAL
     Route: 048
     Dates: start: 20070626, end: 20081013
  3. IRBESARTAN [Suspect]
     Dosage: 150 MG, ORAL
     Route: 048
  4. ACETYLSALICYLIC ACID SRT [Concomitant]
  5. BISOPROLOL FUMARATE [Concomitant]
  6. CODEINE SUL TAB [Concomitant]
  7. DILTIAZEM [Concomitant]
  8. OMACOR [Concomitant]
  9. OMEPRAZOLE [Concomitant]
  10. ACETAMINOPHEN [Concomitant]
  11. SOLIFENACIN (SOLIFENACIN) [Concomitant]
  12. SPIRONOLACTONE [Concomitant]

REACTIONS (11)
  - ANAL HAEMORRHAGE [None]
  - ATRIAL FIBRILLATION [None]
  - DEHYDRATION [None]
  - GASTROOESOPHAGEAL REFLUX DISEASE [None]
  - HYPERTENSION [None]
  - NAUSEA [None]
  - OEDEMA [None]
  - PYREXIA [None]
  - RENAL FAILURE [None]
  - RENAL PAIN [None]
  - WEIGHT INCREASED [None]
